FAERS Safety Report 23154607 (Version 1)
Quarter: 2023Q4

REPORT INFORMATION
  Report Type: Spontaneous
  Country: CN (occurrence: CN)
  Receive Date: 20231107
  Receipt Date: 20231107
  Transmission Date: 20240110
  Serious: Yes (Hospitalization, Other)
  Sender: FDA-Public Use
  Company Number: CN-ABBVIE-5483224

PATIENT
  Age: 75 Year
  Sex: Female
  Weight: 55.5 kg

DRUGS (5)
  1. VENETOCLAX [Suspect]
     Active Substance: VENETOCLAX
     Indication: Acute leukaemia
     Dosage: 400 MILLIGRAM DAY 3 TO DAY 28
     Route: 048
     Dates: start: 20230930, end: 20231009
  2. VENETOCLAX [Suspect]
     Active Substance: VENETOCLAX
     Indication: Acute leukaemia
     Dosage: 200 MILLIGRAM DAY 2
     Route: 048
     Dates: start: 20230929, end: 20230929
  3. VENETOCLAX [Suspect]
     Active Substance: VENETOCLAX
     Indication: Acute leukaemia
     Dosage: 100 MILLIGRAM DAY 1
     Route: 048
     Dates: start: 20230928, end: 20230928
  4. VENETOCLAX [Suspect]
     Active Substance: VENETOCLAX
     Indication: Acute leukaemia
     Dosage: 300 MG QD
     Route: 048
     Dates: start: 202310
  5. AZACITIDINE [Suspect]
     Active Substance: AZACITIDINE
     Indication: Acute leukaemia
     Dosage: 100 MILLIGRAM DAY 1 TO DAY 7
     Route: 065
     Dates: start: 20230928, end: 20231004

REACTIONS (4)
  - Myelosuppression [Recovering/Resolving]
  - Agranulocytosis [Recovering/Resolving]
  - Pruritus [Recovering/Resolving]
  - Drug tolerance decreased [Unknown]

NARRATIVE: CASE EVENT DATE: 20231009
